FAERS Safety Report 5751640-9 (Version None)
Quarter: 2008Q2

REPORT INFORMATION
  Report Type: 
  Country: None (occurrence: None)
  Receive Date: 20080528
  Receipt Date: 20080520
  Transmission Date: 20081010
  Serious: Yes (Other)
  Sender: FDA-Public Use
  Company Number: PHHY2008JP06419

PATIENT
  Age: 76 Year
  Sex: Female

DRUGS (4)
  1. VOLTAREN [Suspect]
     Indication: CEREBRAL INFARCTION
     Route: 048
  2. NSAID'S [Concomitant]
     Route: 048
  3. ASPIRIN [Concomitant]
     Indication: ANGINA PECTORIS
  4. MELOXICAM [Concomitant]

REACTIONS (9)
  - ANGINA PECTORIS [None]
  - ASPIRATION BONE MARROW [None]
  - ENDOSCOPY [None]
  - FATIGUE [None]
  - GASTRIC ULCER [None]
  - IRON DEFICIENCY ANAEMIA [None]
  - MUCOSAL INFLAMMATION [None]
  - OEDEMA MUCOSAL [None]
  - SMALL INTESTINE ULCER [None]
